FAERS Safety Report 4748150-4 (Version None)
Quarter: 2005Q3

REPORT INFORMATION
  Report Type: 
  Country: None (occurrence: None)
  Receive Date: 20050818
  Receipt Date: 20040629
  Transmission Date: 20060218
  Serious: No
  Sender: FDA-Public Use
  Company Number: US-GLAXOSMITHKLINE-A0516439A

PATIENT
  Age: 39 Year
  Sex: Female

DRUGS (2)
  1. STELAZINE [Suspect]
     Indication: SCHIZOPHRENIA
     Route: 048
  2. LITHIUM [Concomitant]

REACTIONS (1)
  - SEDATION [None]
